FAERS Safety Report 6692538-1 (Version None)
Quarter: 2010Q2

REPORT INFORMATION
  Report Type: 
  Country: None (occurrence: None)
  Receive Date: 20100419
  Receipt Date: 20100406
  Transmission Date: 20101027
  Serious: Yes (Other)
  Sender: FDA-Public Use
  Company Number: 1000011446

PATIENT
  Age: 48 Year
  Sex: Female

DRUGS (3)
  1. ESCITALOPRAM [Suspect]
     Indication: ANXIETY
     Dosage: 10 MG (10 MG, 1 IN 1 D)
     Dates: start: 20090516
  2. ATIVAN [Concomitant]
  3. ZOPICLONE [Concomitant]

REACTIONS (2)
  - PARAESTHESIA [None]
  - PSYCHOMOTOR HYPERACTIVITY [None]
